FAERS Safety Report 18444250 (Version 1)
Quarter: 2020Q4

REPORT INFORMATION
  Report Type: Spontaneous
  Country: CH (occurrence: CH)
  Receive Date: 20201030
  Receipt Date: 20201030
  Transmission Date: 20210114
  Serious: Yes (Other)
  Sender: FDA-Public Use
  Company Number: CH-SA-2020SA301920

PATIENT

DRUGS (1)
  1. DUPIXENT [Suspect]
     Active Substance: DUPILUMAB
     Indication: RASH
     Dosage: 600 MG
     Dates: start: 20200818

REACTIONS (10)
  - Peripheral swelling [Recovering/Resolving]
  - Peripheral swelling [Recovering/Resolving]
  - Bone pain [Recovering/Resolving]
  - Abdominal pain [Unknown]
  - Swelling face [Recovering/Resolving]
  - Urinary retention [Unknown]
  - Abdominal distension [Recovering/Resolving]
  - Dizziness [Recovering/Resolving]
  - Erythema [Recovered/Resolved]
  - Eye swelling [Recovering/Resolving]

NARRATIVE: CASE EVENT DATE: 2020
